FAERS Safety Report 20821969 (Version 1)
Quarter: 2022Q2

REPORT INFORMATION
  Report Type: Spontaneous
  Country: US (occurrence: US)
  Receive Date: 20220512
  Receipt Date: 20220512
  Transmission Date: 20220721
  Serious: Yes (Hospitalization)
  Sender: FDA-Public Use
  Company Number: US-ELI_LILLY_AND_COMPANY-US202205001233

PATIENT
  Sex: Female

DRUGS (1)
  1. BASAGLAR [Suspect]
     Active Substance: INSULIN GLARGINE
     Indication: Product used for unknown indication
     Dosage: A SHOT IN THE MORNING AND IN THE EVENING
     Route: 065

REACTIONS (2)
  - Benign pancreatic neoplasm [Recovering/Resolving]
  - Wrong technique in product usage process [Unknown]
